FAERS Safety Report 7878761-9 (Version None)
Quarter: 2011Q4

REPORT INFORMATION
  Report Type: 
  Country: None (occurrence: None)
  Receive Date: 20111028
  Receipt Date: 20111017
  Transmission Date: 20120403
  Serious: Yes (Life-Threatening, Hospitalization, Other)
  Sender: FDA-Public Use
  Company Number: 2011P1009507

PATIENT
  Age: 32 Year
  Sex: Female

DRUGS (2)
  1. FENTANYL [Suspect]
     Indication: BARTHOLIN'S CYST REMOVAL
     Dosage: 100 MCG;X1;IV
     Route: 042
  2. PROPOFOL [Suspect]
     Indication: BARTHOLIN'S CYST REMOVAL
     Dosage: 1 MG/KG;X1;IV
     Route: 042

REACTIONS (12)
  - SINUS TACHYCARDIA [None]
  - MULTI-ORGAN DISORDER [None]
  - VENTRICULAR HYPOKINESIA [None]
  - HYPOTENSION [None]
  - DILATATION VENTRICULAR [None]
  - VOMITING [None]
  - RESPIRATORY FAILURE [None]
  - VENTRICULAR DYSFUNCTION [None]
  - HAEMODYNAMIC INSTABILITY [None]
  - CARDIAC FAILURE ACUTE [None]
  - NAUSEA [None]
  - OXYGEN SATURATION DECREASED [None]
